FAERS Safety Report 11179865 (Version 1)
Quarter: 2015Q2

REPORT INFORMATION
  Report Type: Spontaneous
  Country: US (occurrence: US)
  Receive Date: 20150611
  Receipt Date: 20150611
  Transmission Date: 20150821
  Serious: Yes (Other)
  Sender: FDA-Public Use
  Company Number: US-BAYER-2015-302068

PATIENT
  Age: 29 Year
  Sex: Female

DRUGS (1)
  1. MIRENA [Suspect]
     Active Substance: LEVONORGESTREL
     Dosage: 20 MCG/24HR, CONT
     Route: 015
     Dates: start: 20100914, end: 20130607

REACTIONS (8)
  - Device dislocation [None]
  - Adnexa uteri mass [None]
  - Pain [None]
  - Post procedural discomfort [None]
  - Emotional distress [None]
  - Device dislocation [None]
  - Ovarian cyst ruptured [Recovering/Resolving]
  - Injury [None]

NARRATIVE: CASE EVENT DATE: 201106
